FAERS Safety Report 8351937-2 (Version None)
Quarter: 2012Q2

REPORT INFORMATION
  Report Type: 
  Country: None (occurrence: None)
  Receive Date: 20120511
  Receipt Date: 20120509
  Transmission Date: 20120825
  Serious: No
  Sender: FDA-Public Use
  Company Number: US-PFIZER INC-2012114170

PATIENT
  Sex: Male
  Weight: 90.703 kg

DRUGS (6)
  1. PLAVIX [Concomitant]
     Indication: CARDIAC DISORDER
     Dosage: 75 MG, ALTERNATE DAY
  2. AMLODIPINE [Concomitant]
     Indication: HYPERTENSION
     Dosage: 10 MG, DAILY
  3. LYRICA [Suspect]
     Indication: HERPES ZOSTER
     Dosage: 100 MG, 3X/DAY
     Dates: start: 20120401
  4. ZOCOR [Concomitant]
     Indication: BLOOD CHOLESTEROL INCREASED
     Dosage: 40 MG, DAILY
  5. TOPROL-XL [Concomitant]
     Indication: CARDIAC DISORDER
     Dosage: UNK
  6. XANAX [Concomitant]
     Indication: ANXIETY
     Dosage: 0.5 MG, DAILY

REACTIONS (1)
  - ARTHROPATHY [None]
